FAERS Safety Report 9397048 (Version 6)
Quarter: 2016Q1

REPORT INFORMATION
  Report Type: Spontaneous
  Country: US (occurrence: US)
  Receive Date: 20130712
  Receipt Date: 20160114
  Transmission Date: 20160526
  Serious: Yes (Hospitalization)
  Sender: FDA-Public Use
  Company Number: US-PFIZER INC-2013203411

PATIENT
  Age: 62 Year
  Sex: Female
  Weight: 42.63 kg

DRUGS (8)
  1. LYRICA [Suspect]
     Active Substance: PREGABALIN
     Indication: VULVOVAGINAL PAIN
     Dosage: 50 MG, DAILY
     Route: 048
  2. KLONOPIN [Concomitant]
     Active Substance: CLONAZEPAM
     Indication: VULVOVAGINAL PAIN
     Dosage: 1 MG, 3X/DAY
  3. KLONOPIN [Concomitant]
     Active Substance: CLONAZEPAM
     Indication: ANXIETY
  4. SURFAC [Concomitant]
     Indication: FAECES HARD
  5. LYRICA [Suspect]
     Active Substance: PREGABALIN
     Dosage: 50 MG, 3X/DAY
     Route: 048
  6. LYRICA [Suspect]
     Active Substance: PREGABALIN
     Indication: VULVOVAGINAL PAIN
     Dosage: 75 MG, 3X/DAY
     Route: 048
  7. PRILOSEC [Concomitant]
     Active Substance: OMEPRAZOLE MAGNESIUM
     Dosage: UNK
  8. KLONOPIN [Concomitant]
     Active Substance: CLONAZEPAM
     Indication: STRESS

REACTIONS (8)
  - Diverticulitis [Unknown]
  - Abscess [Unknown]
  - Eating disorder [Not Recovered/Not Resolved]
  - Therapeutic response unexpected [Unknown]
  - Irritable bowel syndrome [Not Recovered/Not Resolved]
  - Folliculitis [Recovered/Resolved]
  - Pre-existing condition improved [Unknown]
  - Pain [Not Recovered/Not Resolved]
